FAERS Safety Report 6967801-7 (Version None)
Quarter: 2010Q3

REPORT INFORMATION
  Report Type: 
  Country: None (occurrence: None)
  Receive Date: 20100907
  Receipt Date: 20100902
  Transmission Date: 20110219
  Serious: Yes (Disabling)
  Sender: FDA-Public Use
  Company Number: US-BAYER-201032329NA

PATIENT

DRUGS (1)
  1. AVELOX [Suspect]
     Indication: SINUSITIS
     Dosage: TOTAL DAILY DOSE: 400 MG  UNIT DOSE: 400 MG
     Route: 048
     Dates: start: 20100527, end: 20100604

REACTIONS (14)
  - ANXIETY [None]
  - ARTHRALGIA [None]
  - BACK DISORDER [None]
  - BURNING SENSATION [None]
  - DYSPNOEA [None]
  - GAIT DISTURBANCE [None]
  - LIMB DISCOMFORT [None]
  - MYALGIA [None]
  - NAUSEA [None]
  - PAIN [None]
  - PAIN IN EXTREMITY [None]
  - SINUSITIS [None]
  - THERMAL BURN [None]
  - WEIGHT DECREASED [None]
